FAERS Safety Report 8791068 (Version 1)
Quarter: 2012Q4

REPORT INFORMATION
  Report Type: Spontaneous
  Country: US (occurrence: None)
  Receive Date: 20120910
  Receipt Date: 20120910
  Transmission Date: 20130627
  Serious: Yes (Other)
  Sender: FDA-Public Use
  Company Number: DSA_59399_2012

PATIENT
  Sex: Male

DRUGS (47)
  1. ELIDEL [Suspect]
     Indication: ECZEMA EYELIDS
     Route: 061
     Dates: start: 200511
  2. CIMETIDINE [Concomitant]
  3. CODEINE CO [Concomitant]
  4. VYVANSE [Concomitant]
  5. AUGMENTIN /00852501/ [Concomitant]
  6. ALDARA [Concomitant]
  7. FLUOXETINE [Concomitant]
  8. HYDROCOTISONE VALERATE [Concomitant]
  9. KETOCONAZOLE [Concomitant]
  10. RISPERIDONE [Concomitant]
  11. ZITHROMAX [Concomitant]
  12. LMX4 [Concomitant]
  13. TYLENOL W/CODEINE NO. 3 [Concomitant]
  14. CHLORHEXIDINE GLUCONATE [Concomitant]
  15. NEUPOGEN [Concomitant]
  16. PROMETHAZINE [Concomitant]
  17. ALLOPURINOL [Concomitant]
  18. PREDNISONE [Concomitant]
  19. RANITIDINE [Concomitant]
  20. BROMFENEX [Concomitant]
  21. ELOCON [Concomitant]
  22. AMOXIL /00249602/ [Concomitant]
  23. TRIAMCINOLONE [Concomitant]
  24. INFLUENZA VACCINE [Concomitant]
  25. PROZAC [Concomitant]
  26. OMNICEF /01130201/ [Concomitant]
  27. ADDERALL [Concomitant]
  28. CONCERTA [Concomitant]
  29. CYCLOPHOSPHAMIDE [Concomitant]
  30. VINCRISTINE [Concomitant]
  31. ADRIAMYCIN /00330901/ [Concomitant]
  32. METHOTREXATE [Concomitant]
  33. SENNA /00142201/ [Concomitant]
  34. CHLORHEXIDINE [Concomitant]
  35. FLUCONAZOLE [Concomitant]
  36. ZYRTEC [Concomitant]
  37. LEUKOVORIN [Concomitant]
  38. CYTOXAN [Concomitant]
  39. CEFEPIME [Concomitant]
  40. FLAGYL [Concomitant]
  41. VANCOMYCIN [Concomitant]
  42. EMLA /00675501/ [Concomitant]
  43. PHENERGAN /0033002/ [Concomitant]
  44. PERIDEX /00133002/ [Concomitant]
  45. SENOKOT /00142205/ [Concomitant]
  46. PREVACID [Concomitant]
  47. ARA-C [Concomitant]

REACTIONS (23)
  - B-cell lymphoma [None]
  - Viral pharyngitis [None]
  - Conjunctivitis [None]
  - Upper respiratory tract infection [None]
  - Sinusitis [None]
  - Ear infection [None]
  - Attention deficit/hyperactivity disorder [None]
  - Pulmonary mass [None]
  - Suicidal ideation [None]
  - Bipolar disorder [None]
  - Psychotic disorder [None]
  - Depression [None]
  - Anger [None]
  - Impulse-control disorder [None]
  - Autism spectrum disorder [None]
  - Obsessive-compulsive disorder [None]
  - Lymphadenopathy [None]
  - Dermatitis atopic [None]
  - Torticollis [None]
  - Asperger^s disorder [None]
  - Gastroenteritis [None]
  - Anaemia [None]
  - Otitis externa [None]
